FAERS Safety Report 6800348-7 (Version None)
Quarter: 2010Q2

REPORT INFORMATION
  Report Type: 
  Country: None (occurrence: None)
  Receive Date: 20100616
  Receipt Date: 20100607
  Transmission Date: 20101027
  Serious: Yes (Hospitalization)
  Sender: FDA-Public Use
  Company Number: 2010SP031915

PATIENT
  Age: 67 Year
  Sex: Male

DRUGS (17)
  1. MIRTAZAPINE [Suspect]
     Indication: DEPRESSION
     Dosage: 45 MG;QD;PO; 60 MG;QD;PO
     Route: 048
     Dates: end: 20091009
  2. MIRTAZAPINE [Suspect]
     Indication: DEPRESSION
     Dosage: 45 MG;QD;PO; 60 MG;QD;PO
     Route: 048
     Dates: start: 20091013, end: 20100127
  3. ESCITALOPRAM OXALATE [Suspect]
     Indication: DEPRESSION
     Dosage: 10 MG;QD;PO;   20 MG; QD; PO;  30 MG;QD;PO  15 MG;QD;PO
     Route: 048
     Dates: start: 20091105, end: 20091211
  4. ESCITALOPRAM OXALATE [Suspect]
     Indication: DEPRESSION
     Dosage: 10 MG;QD;PO;   20 MG; QD; PO;  30 MG;QD;PO  15 MG;QD;PO
     Route: 048
     Dates: start: 20091212, end: 20091221
  5. ESCITALOPRAM OXALATE [Suspect]
     Indication: DEPRESSION
     Dosage: 10 MG;QD;PO;   20 MG; QD; PO;  30 MG;QD;PO  15 MG;QD;PO
     Route: 048
     Dates: start: 20091222, end: 20100124
  6. ESCITALOPRAM OXALATE [Suspect]
     Indication: DEPRESSION
     Dosage: 10 MG;QD;PO;   20 MG; QD; PO;  30 MG;QD;PO  15 MG;QD;PO
     Route: 048
     Dates: start: 20100125, end: 20100203
  7. LITHIUM CARBONATE [Suspect]
     Indication: DEPRESSION
     Dosage: 225 MG;QD;PO; 450 MG;QD;PO
     Route: 048
     Dates: start: 20100104, end: 20100111
  8. LITHIUM CARBONATE [Suspect]
     Indication: DEPRESSION
     Dosage: 225 MG;QD;PO; 450 MG;QD;PO
     Route: 048
     Dates: start: 20100112, end: 20100121
  9. LYRICA [Suspect]
     Indication: DEPRESSION
     Dosage: 50 MG;QD;PO; 75 MG;QD;PO; 50 MG;QD;PO; 25 MG;QD;PO
     Route: 048
     Dates: start: 20100111, end: 20100118
  10. LYRICA [Suspect]
     Indication: DEPRESSION
     Dosage: 50 MG;QD;PO; 75 MG;QD;PO; 50 MG;QD;PO; 25 MG;QD;PO
     Route: 048
     Dates: start: 20100119, end: 20100121
  11. LYRICA [Suspect]
     Indication: DEPRESSION
     Dosage: 50 MG;QD;PO; 75 MG;QD;PO; 50 MG;QD;PO; 25 MG;QD;PO
     Route: 048
     Dates: start: 20100122, end: 20100122
  12. LYRICA [Suspect]
     Indication: DEPRESSION
     Dosage: 50 MG;QD;PO; 75 MG;QD;PO; 50 MG;QD;PO; 25 MG;QD;PO
     Route: 048
     Dates: start: 20100123, end: 20100124
  13. ALLOPURINOL [Concomitant]
  14. DISALUNIL [Concomitant]
  15. LISINOPRIL [Concomitant]
  16. PANTOZOL [Concomitant]
  17. LORAZEPAM [Concomitant]

REACTIONS (6)
  - ABNORMAL BEHAVIOUR [None]
  - AGITATION [None]
  - DELIRIUM [None]
  - DISORIENTATION [None]
  - MENTAL DISORDER [None]
  - UNRESPONSIVE TO STIMULI [None]
